FAERS Safety Report 8454727-5 (Version None)
Quarter: 2012Q2

REPORT INFORMATION
  Report Type: 
  Country: None (occurrence: None)
  Receive Date: 20120614
  Receipt Date: 20120530
  Transmission Date: 20120825
  Serious: Yes (Death, Life-Threatening, Hospitalization)
  Sender: FDA-Public Use
  Company Number: 2012SGN00157

PATIENT
  Age: 45 Year
  Sex: Female

DRUGS (7)
  1. ULONE (CLOFEDANOL HYDROCHLORIDE) [Concomitant]
  2. ADCETRIS [Suspect]
     Indication: NON-HODGKIN'S LYMPHOMA REFRACTORY
     Dosage: 180 MG, UNK, INTRAVENOUS
     Route: 042
     Dates: start: 20120328, end: 20120328
  3. SENNOSIDE (SENNOSIDE A+B CALCIUM) [Concomitant]
  4. ADVAIR HFA [Concomitant]
  5. LORAZEPAM [Concomitant]
  6. OXAZEPAM [Concomitant]
  7. VENTOLIN (BECLOMETASONE DIPROPIONATE, SALBUTAMOL) [Concomitant]

REACTIONS (10)
  - HYPOKALAEMIA [None]
  - NEUTROPENIC COLITIS [None]
  - HYPOCALCAEMIA [None]
  - LUNG DISORDER [None]
  - SEPTIC SHOCK [None]
  - LACTIC ACIDOSIS [None]
  - HYPOMAGNESAEMIA [None]
  - CANDIDIASIS [None]
  - HYPOPHOSPHATAEMIA [None]
  - LUNG INFECTION [None]
